FAERS Safety Report 15138097 (Version 2)
Quarter: 2018Q3

REPORT INFORMATION
  Report Type: Spontaneous
  Country: DE (occurrence: DE)
  Receive Date: 20180713
  Receipt Date: 20180720
  Transmission Date: 20181010
  Serious: Yes (Other)
  Sender: FDA-Public Use
  Company Number: DE-CONCORDIA PHARMACEUTICALS INC.-GSH201807-002325

PATIENT
  Age: 75 Year
  Sex: Female

DRUGS (6)
  1. HYDROCORTISONE?17?BUTYRATE [Suspect]
     Active Substance: HYDROCORTISONE BUTYRATE
  2. AMCINONIDE. [Suspect]
     Active Substance: AMCINONIDE
  3. BUDESONIDE. [Suspect]
     Active Substance: BUDESONIDE
  4. CLOBETASOL?17?PROPIONATE [Suspect]
     Active Substance: CLOBETASOL PROPIONATE
  5. PREDNISOLONE. [Suspect]
     Active Substance: PREDNISOLONE
     Route: 048
  6. TRIAMCINOLONE?ACETONIDE [Suspect]
     Active Substance: TRIAMCINOLONE ACETONIDE

REACTIONS (4)
  - Acute generalised exanthematous pustulosis [Recovering/Resolving]
  - Tachycardia [None]
  - Type IV hypersensitivity reaction [Recovering/Resolving]
  - Urticaria [Unknown]
